FAERS Safety Report 12735742 (Version 3)
Quarter: 2016Q3

REPORT INFORMATION
  Report Type: Spontaneous
  Country: US (occurrence: US)
  Receive Date: 20160912
  Receipt Date: 20160920
  Transmission Date: 20161109
  Serious: No
  Sender: FDA-Public Use
  Company Number: US-HORIZON-BUP-0099-2016

PATIENT
  Age: 13 Year
  Sex: Female

DRUGS (5)
  1. SODIUM BENZOID [Concomitant]
  2. CYCLINEX 2 [Concomitant]
  3. BUPHENYL [Suspect]
     Active Substance: SODIUM PHENYLBUTYRATE
     Indication: ORNITHINE TRANSCARBAMOYLASE DEFICIENCY
     Dosage: 5 TABLETS TID
     Dates: start: 2012
  4. KEPPRA [Concomitant]
     Active Substance: LEVETIRACETAM
  5. CITRULLINE [Concomitant]
     Active Substance: CITRULLINE

REACTIONS (1)
  - Abdominal pain upper [Recovered/Resolved]
